FAERS Safety Report 5794925-2 (Version None)
Quarter: 2008Q2

REPORT INFORMATION
  Report Type: 
  Country: None (occurrence: None)
  Receive Date: 20080626
  Receipt Date: 20080616
  Transmission Date: 20081010
  Serious: Yes (Other)
  Sender: FDA-Public Use
  Company Number: JHP200800170

PATIENT
  Age: 29 Year
  Sex: Male

DRUGS (3)
  1. EPINEPHRINE [Suspect]
     Indication: VASOPRESSIVE THERAPY
     Dosage: INFILTRATION, OTHER
     Route: 050
  2. LIDOCAINE [Concomitant]
  3. ANESTHETICS, GENERAL [Concomitant]

REACTIONS (3)
  - HYPERTENSION [None]
  - MYDRIASIS [None]
  - TACHYCARDIA [None]
